FAERS Safety Report 7605564-2 (Version None)
Quarter: 2011Q3

REPORT INFORMATION
  Report Type: 
  Country: None (occurrence: None)
  Receive Date: 20110713
  Receipt Date: 20110701
  Transmission Date: 20111222
  Serious: Yes (Other)
  Sender: FDA-Public Use
  Company Number: US-BAYER-200934374NA

PATIENT
  Age: 41 Year
  Sex: Male
  Weight: 161 kg

DRUGS (25)
  1. TRASYLOL [Suspect]
     Indication: CORONARY ARTERY BYPASS
     Dosage: 1CC TEST DOSE, 200CC BLOUS, INFUSED AT 500 CC/HR, THEN DECREASED TO 25CC/HR
     Route: 042
     Dates: start: 20051122
  2. AMARYL [Concomitant]
     Dosage: 2 MG, QD
     Route: 048
  3. VECURONIUM BROMIDE [Concomitant]
     Dosage: UNK
     Route: 042
     Dates: start: 20051122
  4. LASIX [Concomitant]
     Dosage: 80 MG, QD
     Route: 048
  5. HYDRALAZINE HCL [Concomitant]
     Dosage: 10 MG, QID
     Route: 048
  6. NITROGLYCERIN [Concomitant]
     Dosage: UNK
     Route: 042
     Dates: start: 20051122
  7. EPINEPHRINE [Concomitant]
     Dosage: UNK
     Route: 042
     Dates: start: 20051122
  8. DOBUTAMINE HCL [Concomitant]
     Dosage: UNK
     Route: 042
     Dates: start: 20051122
  9. PROTAMINE SULFATE [Concomitant]
     Dosage: UNK
     Route: 042
     Dates: start: 20051122
  10. CARDIZEM [Concomitant]
     Dosage: 240 MG, BID
     Route: 048
  11. ACTOS [Concomitant]
     Dosage: 30 MG, QD
  12. PROPOFOL [Concomitant]
     Dosage: UNK
     Route: 042
     Dates: start: 20051122
  13. COREG [Concomitant]
     Dosage: 6.25 MG, BID
     Route: 048
  14. PHENYLEPHRINE HCL [Concomitant]
     Dosage: UNK
     Route: 042
     Dates: start: 20051122
  15. LANTUS [Concomitant]
     Dosage: 40 U, HS
     Route: 058
  16. PLAVIX [Concomitant]
     Dosage: 75 MG, QD
     Route: 048
  17. TENEX [Concomitant]
     Dosage: 1 MG, QD
     Route: 048
  18. VICODIN [Concomitant]
     Dosage: UNK UNK, PRN
  19. DILACOR XR [Concomitant]
     Dosage: 240 MG, BID
     Route: 048
  20. FENTANYL-100 [Concomitant]
     Dosage: UNK
     Route: 042
     Dates: start: 20051122
  21. TRASYLOL [Suspect]
     Indication: ATRIAL SEPTAL DEFECT REPAIR
  22. ACETYLSALICYLIC ACID SRT [Concomitant]
     Dosage: 325 MG, QD
     Route: 048
  23. LIPITOR [Concomitant]
     Dosage: 80 MG, QD
     Route: 048
  24. NOVOLIN [INSULIN] [Concomitant]
     Dosage: SLIDING SCALE
  25. VERSED [Concomitant]
     Dosage: UNK
     Route: 042
     Dates: start: 20051122

REACTIONS (12)
  - INJURY [None]
  - FEAR [None]
  - RENAL FAILURE [None]
  - NERVOUSNESS [None]
  - MULTI-ORGAN FAILURE [None]
  - EMOTIONAL DISTRESS [None]
  - DEPRESSION [None]
  - ANHEDONIA [None]
  - RENAL INJURY [None]
  - PAIN [None]
  - ANXIETY [None]
  - UNEVALUABLE EVENT [None]
